FAERS Safety Report 6464561-3 (Version None)
Quarter: 2009Q4

REPORT INFORMATION
  Report Type: 
  Country: None (occurrence: None)
  Receive Date: 20091201
  Receipt Date: 20091120
  Transmission Date: 20100525
  Serious: Yes (Other)
  Sender: FDA-Public Use
  Company Number: US-PFIZER INC-2009288472

PATIENT
  Sex: Female
  Weight: 87.543 kg

DRUGS (13)
  1. LIPITOR [Suspect]
     Indication: BLOOD CHOLESTEROL INCREASED
     Dosage: UNK
     Route: 048
     Dates: start: 20020101
  2. LEVAQUIN [Suspect]
     Indication: PNEUMONIA
     Dosage: UNK
     Route: 048
     Dates: start: 20090801, end: 20090801
  3. CARVEDILOL [Suspect]
     Indication: HYPERTENSION
     Dosage: 12.5 MG, 2X/DAY
     Route: 048
  4. CARVEDILOL [Suspect]
     Dosage: 12.5 MG, 3X/DAY
  5. SYNTHROID [Concomitant]
     Indication: THYROID DISORDER
     Dosage: 75 MG, 1X/DAY
     Route: 048
  6. BENICAR HCT [Concomitant]
     Indication: CARDIAC DISORDER
     Dosage: 40 MG/12.5 MG, 1X/DAY
     Route: 048
  7. CENTRUM SILVER [Concomitant]
     Dosage: UNK
     Route: 048
  8. ACIDOPHILUS [Concomitant]
     Indication: PROBIOTIC THERAPY
     Dosage: UNK, 1X/DAY
     Route: 048
  9. COENZYME Q10 [Concomitant]
     Dosage: 100 MG, 1X/DAY
     Route: 048
  10. CALCIUM [Concomitant]
     Dosage: 600 MG, 2X/DAY
     Route: 048
  11. FELODIPINE [Concomitant]
     Dosage: 10 MG, 1X/DAY
     Route: 048
  12. IRON [Concomitant]
     Indication: ANAEMIA
     Dosage: UNK
     Route: 048
  13. VITAMINS [Concomitant]
     Dosage: UNK
     Route: 048

REACTIONS (8)
  - ANXIETY [None]
  - APNOEA [None]
  - BLOOD PRESSURE INCREASED [None]
  - DIVERTICULUM [None]
  - FEELING ABNORMAL [None]
  - HALLUCINATION [None]
  - MUSCLE SPASMS [None]
  - MYALGIA [None]
